FAERS Safety Report 9619690 (Version 2)
Quarter: 2015Q4

REPORT INFORMATION
  Report Type: Report from Study
  Country: US (occurrence: US)
  Receive Date: 20131014
  Receipt Date: 20151104
  Transmission Date: 20160305
  Serious: Yes (Other)
  Sender: FDA-Public Use
  Company Number: US-ROCHE-1284362

PATIENT
  Age: 48 Year
  Sex: Female

DRUGS (20)
  1. METHOTREXATE SODIUM. [Concomitant]
     Active Substance: METHOTREXATE SODIUM
     Dosage: 25 MG/ML INJECTION, INJECT 0.8 ML (20 MG)
     Route: 030
     Dates: start: 20130903
  2. ZOLPIDEM [Concomitant]
     Active Substance: ZOLPIDEM\ZOLPIDEM TARTRATE
     Route: 048
     Dates: start: 20130903
  3. CLONAZEPAM. [Concomitant]
     Active Substance: CLONAZEPAM
     Route: 048
  4. GABAPENTIN. [Concomitant]
     Active Substance: GABAPENTIN
     Route: 048
     Dates: start: 20130603
  5. FOLIC ACID. [Concomitant]
     Active Substance: FOLIC ACID
     Route: 048
     Dates: start: 20130903
  6. CLONAZEPAM. [Concomitant]
     Active Substance: CLONAZEPAM
     Dosage: 0.15 MG -30 MCG
     Route: 048
     Dates: start: 20130824
  7. HYDROCODONE BITARTRATE. [Concomitant]
     Active Substance: HYDROCODONE BITARTRATE
     Dosage: 7.5MG/325MG ; AS NEEDED FOR PAIN
     Route: 048
     Dates: start: 20130603
  8. APRI [Concomitant]
     Active Substance: DESOGESTREL\ETHINYL ESTRADIOL
     Dosage: TAKE 1.5 TAB QHS
     Route: 048
     Dates: start: 20130903
  9. ZOLPIDEM [Concomitant]
     Active Substance: ZOLPIDEM\ZOLPIDEM TARTRATE
     Route: 048
     Dates: start: 20130603
  10. RITUXAN [Suspect]
     Active Substance: RITUXIMAB
     Indication: RHEUMATOID ARTHRITIS
     Dosage: 10 MG/ML CONCENTRATE; (INFUSE 375 MG/M2) TWICE
     Route: 042
     Dates: start: 20130307, end: 20130903
  11. ACTEMRA [Suspect]
     Active Substance: TOCILIZUMAB
     Indication: RHEUMATOID ARTHRITIS
     Dosage: 200 MG/10 ML (20 MG/ML)
     Route: 042
     Dates: start: 20130903
  12. ACTEMRA [Suspect]
     Active Substance: TOCILIZUMAB
     Route: 042
  13. APRI [Concomitant]
     Active Substance: DESOGESTREL\ETHINYL ESTRADIOL
     Dosage: TAKE 1.5 TAB QHS
     Route: 048
     Dates: start: 20130603, end: 20130903
  14. CYMBALTA [Concomitant]
     Active Substance: DULOXETINE HYDROCHLORIDE
     Dosage: DELAYED RELEASE
     Route: 048
     Dates: start: 20130603
  15. METHOTREXATE SODIUM. [Concomitant]
     Active Substance: METHOTREXATE SODIUM
     Dosage: 25 MG/ML INJECTION, INJECT 0.8 ML (20 MG)
     Route: 030
  16. CYMBALTA [Concomitant]
     Active Substance: DULOXETINE HYDROCHLORIDE
     Dosage: DELAYED RELEASE
     Route: 048
     Dates: start: 20130903
  17. HYDROCODONE BITARTRATE. [Concomitant]
     Active Substance: HYDROCODONE BITARTRATE
     Dosage: 7.5MG/325MG; AS NEEDED FOR PAIN
     Route: 048
     Dates: start: 20130903
  18. ACETAMINOPHEN. [Concomitant]
     Active Substance: ACETAMINOPHEN
  19. GABAPENTIN. [Concomitant]
     Active Substance: GABAPENTIN
     Route: 048
     Dates: start: 20130903
  20. FOLIC ACID. [Concomitant]
     Active Substance: FOLIC ACID
     Route: 048
     Dates: start: 20130603

REACTIONS (53)
  - Spinal osteoarthritis [Unknown]
  - Pain [Unknown]
  - Coordination abnormal [Unknown]
  - Rheumatoid arthritis [Unknown]
  - Headache [Unknown]
  - Autonomic nervous system imbalance [Unknown]
  - Chills [Unknown]
  - Diarrhoea [Unknown]
  - Temperature intolerance [Unknown]
  - Alopecia [Unknown]
  - Fall [Unknown]
  - Decreased activity [Unknown]
  - Fatigue [Unknown]
  - Rash [Unknown]
  - Fibromyalgia [Unknown]
  - Burning sensation [Unknown]
  - Urine analysis abnormal [Unknown]
  - Exercise tolerance decreased [Unknown]
  - Night sweats [Unknown]
  - Weight increased [Unknown]
  - Pleuritic pain [Unknown]
  - Lip dry [Unknown]
  - Pruritus [Unknown]
  - Arthralgia [Unknown]
  - Myelopathy [Unknown]
  - Sjogren^s syndrome [Unknown]
  - Eye disorder [Unknown]
  - Epistaxis [Unknown]
  - Orthostatic hypotension [Unknown]
  - Red blood cell sedimentation rate increased [Unknown]
  - Antinuclear antibody positive [Unknown]
  - Dyspnoea [Unknown]
  - Constipation [Unknown]
  - Discomfort [Unknown]
  - Abdominal pain [Unknown]
  - Decreased appetite [Unknown]
  - Dyspareunia [Unknown]
  - Mood swings [Unknown]
  - Muscle spasms [Unknown]
  - Paraesthesia [Unknown]
  - Weight decreased [Unknown]
  - Cystitis [Unknown]
  - Micturition urgency [Unknown]
  - Balance disorder [Unknown]
  - Oral discomfort [Unknown]
  - Musculoskeletal stiffness [Unknown]
  - Panic attack [Unknown]
  - Sleep disorder [Unknown]
  - Vulvovaginal dryness [Unknown]
  - Skin ulcer [Unknown]
  - Anxiety [Unknown]
  - Speech disorder [Unknown]
  - Dry skin [Unknown]

NARRATIVE: CASE EVENT DATE: 20130903
